FAERS Safety Report 7663713-4 (Version None)
Quarter: 2011Q3

REPORT INFORMATION
  Report Type: 
  Country: None (occurrence: None)
  Receive Date: 20110805
  Receipt Date: 20100912
  Transmission Date: 20111222
  Serious: No
  Sender: FDA-Public Use
  Company Number: US-ABBOTT-10P-163-0671335-00

PATIENT
  Sex: Female
  Weight: 63.56 kg

DRUGS (3)
  1. NIASPAN [Suspect]
     Indication: CAROTID ARTERY OCCLUSION
     Dates: start: 20100601, end: 20100701
  2. NIASPAN [Suspect]
     Dates: start: 20100701
  3. UNKNOWN ANTI-INFLAMMATORY [Concomitant]
     Indication: SCIATICA
     Dates: start: 20100801

REACTIONS (2)
  - FLUSHING [None]
  - CONTUSION [None]
